FAERS Safety Report 6188141-2 (Version None)
Quarter: 2009Q2

REPORT INFORMATION
  Report Type: 
  Country: None (occurrence: None)
  Receive Date: 20090513
  Receipt Date: 20080414
  Transmission Date: 20091009
  Serious: No
  Sender: FDA-Public Use
  Company Number: A0722855A

PATIENT
  Age: 66 Year
  Sex: Male

DRUGS (6)
  1. DYNACIRC CR [Suspect]
     Indication: HYPERTENSION
     Dosage: 5MG PER DAY
     Route: 048
     Dates: start: 20080412, end: 20080412
  2. ZOCOR [Concomitant]
  3. GLUCOSAMINE [Concomitant]
  4. VITAMIN [Concomitant]
  5. OSCAL [Concomitant]
  6. ASPIRIN [Concomitant]

REACTIONS (1)
  - BLOOD PRESSURE INCREASED [None]
